FAERS Safety Report 11631927 (Version 1)
Quarter: 2015Q4

REPORT INFORMATION
  Report Type: Spontaneous
  Country: US (occurrence: US)
  Receive Date: 20151015
  Receipt Date: 20151015
  Transmission Date: 20160304
  Serious: Yes (Death, Hospitalization)
  Sender: FDA-Public Use
  Company Number: US-CIPLA LTD.-2015US07953

PATIENT

DRUGS (6)
  1. LAMOTRIGINE. [Suspect]
     Active Substance: LAMOTRIGINE
     Indication: BIPOLAR DISORDER
     Dosage: 4 G, UNK
     Route: 065
  2. ACTIVATED CHARCOAL [Suspect]
     Active Substance: ACTIVATED CHARCOAL
     Indication: INTENTIONAL OVERDOSE
     Dosage: 50 G, UNK
     Route: 065
  3. EPINEPHRINE. [Suspect]
     Active Substance: EPINEPHRINE
     Indication: PULSE ABSENT
     Dosage: 1 MG, UNK
     Route: 042
  4. DIAZEPAM. [Suspect]
     Active Substance: DIAZEPAM
     Indication: GENERALISED TONIC-CLONIC SEIZURE
     Dosage: 5 MG, UNK
     Route: 042
  5. SODIUM BICARBONATE. [Suspect]
     Active Substance: SODIUM BICARBONATE
     Indication: RESPIRATORY ACIDOSIS
     Dosage: 50 ML, UNK
  6. SODIUM BICARBONATE. [Suspect]
     Active Substance: SODIUM BICARBONATE
     Indication: METABOLIC ACIDOSIS

REACTIONS (20)
  - Sinus tachycardia [Unknown]
  - Mental status changes [Unknown]
  - Metabolic acidosis [Unknown]
  - Pulse absent [Recovered/Resolved]
  - Rhabdomyolysis [Unknown]
  - Pneumonia staphylococcal [Unknown]
  - Acute kidney injury [Unknown]
  - Encephalopathy [Unknown]
  - Respiratory arrest [Unknown]
  - Multi-organ failure [Unknown]
  - Intentional overdose [Fatal]
  - Aspiration [Unknown]
  - Disseminated intravascular coagulation [Unknown]
  - Pallor [Unknown]
  - Electrocardiogram QRS complex prolonged [Unknown]
  - Pneumonia klebsiella [Unknown]
  - Respiratory acidosis [Unknown]
  - Generalised tonic-clonic seizure [Recovered/Resolved]
  - Tremor [Unknown]
  - Atrioventricular block complete [Unknown]
